FAERS Safety Report 9691600 (Version 1)
Quarter: 2013Q4

REPORT INFORMATION
  Report Type: Spontaneous
  Country: CA (occurrence: US)
  Receive Date: 20131115
  Receipt Date: 20131115
  Transmission Date: 20140711
  Serious: No
  Sender: FDA-Public Use
  Company Number: CA-009507513-1311USA006457

PATIENT
  Age: 1 Year
  Sex: Female
  Weight: 7.9 kg

DRUGS (1)
  1. LIQUAEMIN [Suspect]
     Indication: THROMBOSIS PROPHYLAXIS

REACTIONS (1)
  - Heparin-induced thrombocytopenia [Unknown]
